FAERS Safety Report 4445124-8 (Version None)
Quarter: 2004Q3

REPORT INFORMATION
  Report Type: 
  Country: None (occurrence: None)
  Receive Date: 20040907
  Receipt Date: 20040823
  Transmission Date: 20050211
  Serious: Yes (Hospitalization, Other)
  Sender: FDA-Public Use
  Company Number: 2004229741FR

PATIENT
  Age: 21 Year
  Sex: Male

DRUGS (1)
  1. DELTASONE [Suspect]
     Indication: COLITIS
     Dosage: SEE IMAGE

REACTIONS (3)
  - COLITIS [None]
  - DISEASE RECURRENCE [None]
  - DRUG DEPENDENCE [None]
